FAERS Safety Report 13027392 (Version 1)
Quarter: 2016Q4

REPORT INFORMATION
  Report Type: Spontaneous
  Country: US (occurrence: US)
  Receive Date: 20161214
  Receipt Date: 20161214
  Transmission Date: 20170207
  Serious: No
  Sender: FDA-Public Use
  Company Number: US-ENDO PHARMACEUTICALS INC.-2016-001235

PATIENT
  Sex: Female

DRUGS (1)
  1. HYDROCODONE BITARTRATE / ACETAMINOPHEN [Suspect]
     Active Substance: ACETAMINOPHEN\HYDROCODONE BITARTRATE
     Indication: PAIN
     Route: 065
     Dates: start: 20151218, end: 20160123

REACTIONS (3)
  - Alopecia [Recovered/Resolved]
  - Fall [Recovered/Resolved]
  - Spinal cord injury [Unknown]

NARRATIVE: CASE EVENT DATE: 20151229
